FAERS Safety Report 6188686-5 (Version None)
Quarter: 2009Q2

REPORT INFORMATION
  Report Type: 
  Country: None (occurrence: None)
  Receive Date: 20090513
  Receipt Date: 20090504
  Transmission Date: 20091009
  Serious: Yes (Hospitalization)
  Sender: FDA-Public Use
  Company Number: US-JNJFOC-20090500439

PATIENT
  Age: 4 Year

DRUGS (2)
  1. PARACETAMOL [Suspect]
     Indication: UPPER RESPIRATORY TRACT INFECTION
  2. PARACETAMOL [Suspect]
     Indication: PYREXIA
     Dosage: 36 MG/KG/DAY X 4 DAYS

REACTIONS (5)
  - BRAIN OEDEMA [None]
  - COMA [None]
  - ENCEPHALOPATHY [None]
  - HEPATIC NECROSIS [None]
  - PROTHROMBIN LEVEL INCREASED [None]
